FAERS Safety Report 18265100 (Version 1)
Quarter: 2020Q3

REPORT INFORMATION
  Report Type: Spontaneous
  Country: CA (occurrence: CA)
  Receive Date: 20200915
  Receipt Date: 20200915
  Transmission Date: 20201103
  Serious: Yes (Hospitalization, Other)
  Sender: FDA-Public Use
  Company Number: CA-AUROBINDO-AUR-APL-2020-047565

PATIENT
  Age: 81 Year
  Sex: Male

DRUGS (1)
  1. DONEPEZIL TABLETS [Suspect]
     Active Substance: DONEPEZIL
     Indication: COGNITIVE DISORDER
     Dosage: UNK
     Route: 048

REACTIONS (1)
  - Bradycardia [Unknown]
